FAERS Safety Report 19862000 (Version 1)
Quarter: 2021Q3

REPORT INFORMATION
  Report Type: Spontaneous
  Country: CN (occurrence: CN)
  Receive Date: 20210920
  Receipt Date: 20210920
  Transmission Date: 20211014
  Serious: Yes (Other)
  Sender: FDA-Public Use
  Company Number: CN-ROCHE-2910416

PATIENT
  Age: 43 Year
  Sex: Female
  Weight: 46 kg

DRUGS (2)
  1. ALECTINIB. [Suspect]
     Active Substance: ALECTINIB
     Indication: METASTASIS
     Route: 065
     Dates: start: 2021
  2. ALECTINIB. [Suspect]
     Active Substance: ALECTINIB
     Indication: LUNG ADENOCARCINOMA

REACTIONS (3)
  - Dizziness [Unknown]
  - Haemoglobin decreased [Unknown]
  - Melaena [Unknown]

NARRATIVE: CASE EVENT DATE: 2021
